FAERS Safety Report 4691983-3 (Version None)
Quarter: 2005Q2

REPORT INFORMATION
  Report Type: 
  Country: None (occurrence: None)
  Receive Date: 20050614
  Receipt Date: 20050606
  Transmission Date: 20051028
  Serious: Yes (Hospitalization)
  Sender: FDA-Public Use
  Company Number: COV2-2005-00058

PATIENT
  Sex: Female
  Weight: 79.2 kg

DRUGS (14)
  1. FOSRENOL [Suspect]
     Indication: HYPERPHOSPHATAEMIA
     Dosage: 750 MG, 3X/DAY:TID, ORAL
     Route: 048
     Dates: start: 20050406, end: 20050603
  2. GLYBURIDE [Concomitant]
  3. HUMULIN 70/30 [Concomitant]
  4. NORVASC [Concomitant]
  5. NEPHRO-VITE                      RX (ASCORBIC ACID, FOLIC ACID, VITAMI [Concomitant]
  6. COZAAR [Concomitant]
  7. VITAMIN B12 [Concomitant]
  8. IMODIUM [Concomitant]
  9. ASPIRIN [Concomitant]
  10. COUMADIN [Concomitant]
  11. FOLIC ACID [Concomitant]
  12. ARANESP [Concomitant]
  13. ZEMPLAR [Concomitant]
  14. FERRLECIT [Concomitant]

REACTIONS (2)
  - PNEUMONIA ASPIRATION [None]
  - VOMITING [None]
